FAERS Safety Report 16869901 (Version 1)
Quarter: 2019Q3

REPORT INFORMATION
  Report Type: Spontaneous
  Country: JP (occurrence: JP)
  Receive Date: 20190930
  Receipt Date: 20190930
  Transmission Date: 20191005
  Serious: Yes (Other)
  Sender: FDA-Public Use
  Company Number: PHJP2019JP012850

PATIENT
  Sex: Female

DRUGS (2)
  1. REVOLADE TAB [Suspect]
     Active Substance: ELTROMBOPAG
     Indication: IMMUNE THROMBOCYTOPENIC PURPURA
     Dosage: 12.5 MG, UNK
     Route: 048
     Dates: start: 201906, end: 201906
  2. REVOLADE TAB [Suspect]
     Active Substance: ELTROMBOPAG
     Indication: APLASTIC ANAEMIA
     Dosage: 12.5 MG, UNK
     Route: 048

REACTIONS (2)
  - Nausea [Recovered/Resolved]
  - Aplastic anaemia [Unknown]

NARRATIVE: CASE EVENT DATE: 201906
